FAERS Safety Report 20870935 (Version 3)
Quarter: 2022Q2

REPORT INFORMATION
  Report Type: Spontaneous
  Country: MX (occurrence: MX)
  Receive Date: 20220525
  Receipt Date: 20220609
  Transmission Date: 20220721
  Serious: Yes (Other)
  Sender: FDA-Public Use
  Company Number: MX-NOVARTISPH-NVSC2022MX119775

PATIENT
  Age: 37 Year
  Sex: Female
  Weight: 46 kg

DRUGS (6)
  1. MIDOSTAURIN [Suspect]
     Active Substance: MIDOSTAURIN
     Indication: FLT3 gene mutation
     Dosage: 50 MG, Q12H
     Route: 048
     Dates: start: 20211125, end: 20211209
  2. MIDOSTAURIN [Suspect]
     Active Substance: MIDOSTAURIN
     Dosage: 50 MG, Q12H
     Route: 048
     Dates: start: 20220121, end: 20220203
  3. ONDANSETRON [Suspect]
     Active Substance: ONDANSETRON
     Indication: Nausea
     Dosage: 8 MG, Q12H
     Route: 042
     Dates: start: 20211117, end: 20211117
  4. CYTARABINE [Concomitant]
     Active Substance: CYTARABINE
     Indication: Acute myeloid leukaemia
     Dosage: 150 MG, Q12H (FOR 10 DAYS)
     Route: 042
     Dates: start: 20211117, end: 20211126
  5. IDARUBICIN [Concomitant]
     Active Substance: IDARUBICIN
     Indication: Acute myeloid leukaemia
     Dosage: 15 MG, Q48H
     Route: 042
     Dates: start: 20211117, end: 20211126
  6. POSACONAZOLE [Concomitant]
     Active Substance: POSACONAZOLE
     Indication: Myelosuppression
     Dosage: 10 ML, Q12H
     Route: 048
     Dates: start: 20211115, end: 20211117

REACTIONS (3)
  - Cardiac failure acute [Recovered/Resolved]
  - Respiratory arrest [Recovered/Resolved]
  - Septic shock [Unknown]

NARRATIVE: CASE EVENT DATE: 20211201
